FAERS Safety Report 25730552 (Version 2)
Quarter: 2025Q4

REPORT INFORMATION
  Report Type: Spontaneous
  Country: US (occurrence: US)
  Receive Date: 20250827
  Receipt Date: 20251020
  Transmission Date: 20260117
  Serious: No
  Sender: SANOFI AVENTIS
  Company Number: US-SA-2023SA282159

PATIENT
  Age: 64 Year
  Sex: Female

DRUGS (1)
  1. DUPIXENT [Suspect]
     Active Substance: DUPILUMAB
     Indication: Asthma
     Dosage: 300 MG, QOW
     Route: 058

REACTIONS (8)
  - Bone pain [Unknown]
  - Pain in extremity [Unknown]
  - Burning sensation [Unknown]
  - Skin lesion [Unknown]
  - Dermatitis contact [Unknown]
  - Back pain [Unknown]
  - Asthma [Unknown]
  - Arthralgia [Unknown]
